FAERS Safety Report 15542844 (Version 2)
Quarter: 2018Q4

REPORT INFORMATION
  Report Type: Spontaneous
  Country: KR (occurrence: KR)
  Receive Date: 20181023
  Receipt Date: 20181026
  Transmission Date: 20190205
  Serious: Yes (Death, Hospitalization, Other)
  Sender: FDA-Public Use
  Company Number: KR-JNJFOC-20181028107

PATIENT

DRUGS (1)
  1. XARELTO [Suspect]
     Active Substance: RIVAROXABAN
     Indication: PRODUCT USED FOR UNKNOWN INDICATION
     Route: 048

REACTIONS (12)
  - Cardiac death [Fatal]
  - Haemorrhagic stroke [Unknown]
  - Ischaemic stroke [Unknown]
  - Mucosal haemorrhage [Unknown]
  - Embolism [Unknown]
  - Hospitalisation [Unknown]
  - Cerebrovascular accident [Unknown]
  - Haemorrhage intracranial [Unknown]
  - Myocardial infarction [Unknown]
  - Death [Fatal]
  - Haemorrhage [Unknown]
  - Gastrointestinal haemorrhage [Unknown]
